FAERS Safety Report 5546842-0 (Version None)
Quarter: 2007Q4

REPORT INFORMATION
  Report Type: 
  Country: None (occurrence: None)
  Receive Date: 20071211
  Receipt Date: 20071203
  Transmission Date: 20080405
  Serious: Yes (Hospitalization, Other)
  Sender: FDA-Public Use
  Company Number: PFIZER INC-2007081826

PATIENT
  Sex: Female
  Weight: 67.1 kg

DRUGS (7)
  1. BEXTRA [Suspect]
     Indication: SYSTEMIC LUPUS ERYTHEMATOSUS
  2. VIOXX [Concomitant]
  3. PERCOCET [Concomitant]
  4. MOBIC [Concomitant]
  5. ASPIRIN [Concomitant]
  6. ALEVE [Concomitant]
  7. ADVIL LIQUI-GELS [Concomitant]

REACTIONS (3)
  - CARDIAC DISORDER [None]
  - CEREBROVASCULAR ACCIDENT [None]
  - MYOCARDIAL INFARCTION [None]
